FAERS Safety Report 10379637 (Version 3)
Quarter: 2014Q4

REPORT INFORMATION
  Report Type: Spontaneous
  Country: FR (occurrence: None)
  Receive Date: 20140808
  Receipt Date: 20141003
  Transmission Date: 20150528
  Serious: Yes (Hospitalization, Disabling)
  Sender: FDA-Public Use
  Company Number: FR-016610

PATIENT
  Age: 62 Year
  Sex: Male

DRUGS (8)
  1. ASPEGIC [Concomitant]
     Active Substance: ASPIRIN DL-LYSINE
  2. FIRMAGON [Suspect]
     Active Substance: DEGARELIX ACETATE
     Indication: PROSTATIC ADENOMA
     Dosage: 80 MG 1X/MONTH, 4 INJECTIONS IN ALL BETWEEN START DATE AND STOP DATE SUBCUTANEOUS
     Route: 058
     Dates: start: 20131020, end: 20140122
  3. OGASTORO [Concomitant]
     Active Substance: LANSOPRAZOLE
  4. PLAVIX [Concomitant]
     Active Substance: CLOPIDOGREL BISULFATE
  5. ISOPTIN [Concomitant]
     Active Substance: VERAPAMIL HYDROCHLORIDE
  6. STAGID [Concomitant]
     Active Substance: METFORMIN PAMOATE
  7. PRAVASTATIN [Concomitant]
     Active Substance: PRAVASTATIN\PRAVASTATIN SODIUM
  8. BIPRETERAX /01421201/ [Concomitant]
     Active Substance: INDAPAMIDE\PERINDOPRIL ERBUMINE

REACTIONS (9)
  - Lateral medullary syndrome [None]
  - Dysphonia [None]
  - Diplopia [None]
  - Sensory disturbance [None]
  - Vertebral artery occlusion [None]
  - Ataxia [None]
  - Nausea [None]
  - Headache [None]
  - Cerebellar ischaemia [None]

NARRATIVE: CASE EVENT DATE: 20140126
